FAERS Safety Report 9386969 (Version 2)
Quarter: 2014Q2

REPORT INFORMATION
  Report Type: Spontaneous
  Country: JP (occurrence: JP)
  Receive Date: 20130708
  Receipt Date: 20140630
  Transmission Date: 20141212
  Serious: Yes (Other)
  Sender: FDA-Public Use
  Company Number: JP-ROCHE-1245948

PATIENT
  Age: 63 Year
  Sex: Female
  Weight: 40 kg

DRUGS (8)
  1. AVASTIN [Suspect]
     Indication: COLON CANCER METASTATIC
     Dosage: DOSAGE IS UNCERTAIN.
     Route: 041
     Dates: start: 20120508, end: 20120511
  2. XELODA [Suspect]
     Indication: COLON CANCER METASTATIC
     Dosage: 2 WEEKS ADMINISTRATION FOLOWED BY 1 WEEK REST
     Route: 048
     Dates: start: 20120508, end: 20120511
  3. ELPLAT [Concomitant]
     Indication: COLON CANCER METASTATIC
     Dosage: .
     Route: 041
     Dates: start: 20120508, end: 20120511
  4. LOXONIN [Concomitant]
     Indication: RHEUMATOID ARTHRITIS
     Route: 048
  5. AZULFIDINE-EN [Concomitant]
     Indication: RHEUMATOID ARTHRITIS
     Route: 048
  6. METHOTREXATE [Concomitant]
     Indication: RHEUMATOID ARTHRITIS
     Dosage: 7.5MG 2.5MG
     Route: 048
  7. PREDNISOLONE [Concomitant]
     Indication: RHEUMATOID ARTHRITIS
     Dosage: 3MG 2MG
     Route: 048
  8. THYRADIN-S [Concomitant]
     Indication: AUTOIMMUNE THYROIDITIS
     Route: 048

REACTIONS (3)
  - Large intestine perforation [Recovered/Resolved]
  - Peritonitis [Unknown]
  - Gastrointestinal perforation [Unknown]
